FAERS Safety Report 8817072 (Version 1)
Quarter: 2012Q4

REPORT INFORMATION
  Report Type: Spontaneous
  Country: US (occurrence: None)
  Receive Date: 20121003
  Receipt Date: 20121003
  Transmission Date: 20130627
  Serious: Yes (Hospitalization)
  Sender: FDA-Public Use
  Company Number: None

PATIENT
  Age: 63 Year
  Sex: Female

DRUGS (1)
  1. ZOLPIDEM TARTRATE [Suspect]
     Indication: SLEEP DISORDER THERAPY
     Dosage: 1 tablet at bedtime po

Dates of use : unknown:9/24/12 picked up
     Route: 048

REACTIONS (4)
  - Psychotic disorder [None]
  - Multiple fractures [None]
  - Altered state of consciousness [None]
  - Aggression [None]
